FAERS Safety Report 10677176 (Version 1)
Quarter: 2014Q4

REPORT INFORMATION
  Report Type: Report from Study
  Country: US (occurrence: US)
  Receive Date: 20141226
  Receipt Date: 20141226
  Transmission Date: 20150529
  Serious: Yes (Other)
  Sender: FDA-Public Use
  Company Number: PHEH2014US025536

PATIENT
  Age: 57 Year
  Sex: Female

DRUGS (1)
  1. MYFORTIC [Suspect]
     Active Substance: MYCOPHENOLATE SODIUM
     Indication: TRANSPLANT
     Route: 048

REACTIONS (4)
  - Chest pain [Unknown]
  - Malaise [Unknown]
  - Back pain [Unknown]
  - Cardiac failure congestive [Unknown]

NARRATIVE: CASE EVENT DATE: 20141217
